FAERS Safety Report 6230134-0 (Version None)
Quarter: 2009Q2

REPORT INFORMATION
  Report Type: 
  Country: None (occurrence: None)
  Receive Date: 20090615
  Receipt Date: 20090609
  Transmission Date: 20091009
  Serious: Yes (Hospitalization)
  Sender: FDA-Public Use
  Company Number: FR-AVENTIS-200912144FR

PATIENT
  Age: 94 Year
  Sex: Male

DRUGS (6)
  1. LASILIX                            /00032601/ [Suspect]
     Indication: DRUG USE FOR UNKNOWN INDICATION
     Route: 048
     Dates: start: 20090418, end: 20090514
  2. NITRODERM [Concomitant]
     Indication: DRUG USE FOR UNKNOWN INDICATION
     Route: 062
     Dates: start: 20090406, end: 20090518
  3. PREVISCAN                          /00789001/ [Concomitant]
     Indication: PULMONARY EMBOLISM
     Route: 048
     Dates: start: 20090410, end: 20090514
  4. DIFFU K [Concomitant]
     Indication: DRUG USE FOR UNKNOWN INDICATION
     Route: 048
     Dates: start: 20090401, end: 20090514
  5. CIPROFLOXACIN HCL [Concomitant]
     Indication: PROSTATITIS
     Route: 048
     Dates: start: 20090410, end: 20090518
  6. CORTANCYL [Concomitant]
     Indication: DRUG USE FOR UNKNOWN INDICATION
     Route: 048
     Dates: start: 20090330

REACTIONS (3)
  - DEHYDRATION [None]
  - HYPERNATRAEMIA [None]
  - RENAL FAILURE ACUTE [None]
